FAERS Safety Report 7116211-0 (Version None)
Quarter: 2010Q4

REPORT INFORMATION
  Report Type: 
  Country: None (occurrence: None)
  Receive Date: 20101122
  Receipt Date: 20101116
  Transmission Date: 20110411
  Serious: Yes (Congenital Anomaly)
  Sender: FDA-Public Use
  Company Number: IL-TEVA-254228ISR

PATIENT

DRUGS (1)
  1. LEVONORGESTREL [Suspect]
     Indication: POST COITAL CONTRACEPTION
     Route: 064
     Dates: start: 20090801, end: 20090801

REACTIONS (2)
  - CLEFT LIP [None]
  - CLEFT PALATE [None]
